FAERS Safety Report 8590295-5 (Version None)
Quarter: 2012Q3

REPORT INFORMATION
  Report Type: 
  Country: None (occurrence: None)
  Receive Date: 20120813
  Receipt Date: 20120720
  Transmission Date: 20120928
  Serious: Yes (Other)
  Sender: FDA-Public Use
  Company Number: JP-GLAXOSMITHKLINE-B0794777A

PATIENT
  Age: 51 Year
  Sex: Female

DRUGS (2)
  1. HYCAMTIN [Suspect]
     Dosage: 1MGM2 PER DAY
     Route: 042
     Dates: start: 20111219, end: 20120203
  2. HYCAMTIN [Suspect]
     Indication: OVARIAN CANCER RECURRENT
     Dosage: 1.25MGM2 PER DAY
     Route: 042
     Dates: start: 20111128, end: 20111202

REACTIONS (8)
  - HEADACHE [None]
  - NEUTROPHIL COUNT DECREASED [None]
  - ANAEMIA [None]
  - NAUSEA [None]
  - WHITE BLOOD CELL COUNT DECREASED [None]
  - PLATELET COUNT DECREASED [None]
  - DECREASED APPETITE [None]
  - RED BLOOD CELL COUNT DECREASED [None]
